FAERS Safety Report 6762830-0 (Version None)
Quarter: 2010Q2

REPORT INFORMATION
  Report Type: 
  Country: None (occurrence: None)
  Receive Date: 20100609
  Receipt Date: 20100604
  Transmission Date: 20101027
  Serious: Yes (Other)
  Sender: FDA-Public Use
  Company Number: DE-GILEAD-2010-0029630

PATIENT
  Sex: Male

DRUGS (6)
  1. CAYSTON [Suspect]
     Indication: BRONCHITIS
  2. URBASON [Concomitant]
  3. URBASON [Concomitant]
  4. FORADIL [Concomitant]
  5. ATROVENT [Concomitant]
  6. COTRIM [Concomitant]

REACTIONS (5)
  - CONFUSIONAL STATE [None]
  - DYSPNOEA [None]
  - FEELING HOT [None]
  - HAEMOPTYSIS [None]
  - MUSCLE SPASMS [None]
